FAERS Safety Report 8156592 (Version 4)
Quarter: 2013Q2

REPORT INFORMATION
  Report Type: Spontaneous
  Country: US (occurrence: US)
  Receive Date: 20110926
  Receipt Date: 20130606
  Transmission Date: 20140414
  Serious: Yes (Hospitalization)
  Sender: FDA-Public Use
  Company Number: US-BAYER-2011-087474

PATIENT
  Age: 40 Year
  Sex: Female
  Weight: 84 kg

DRUGS (18)
  1. YASMIN [Suspect]
     Indication: CONTRACEPTION
     Dosage: UNK
  2. YASMIN [Suspect]
     Indication: PREMENSTRUAL SYNDROME
  3. YASMIN [Suspect]
     Indication: POLYCYSTIC OVARIES
  4. YAZ [Suspect]
     Indication: CONTRACEPTION
     Dosage: UNK
     Dates: start: 200810, end: 200907
  5. YAZ [Suspect]
     Indication: PREMENSTRUAL SYNDROME
  6. YAZ [Suspect]
     Indication: POLYCYSTIC OVARIES
  7. LEVOTHYROXIN [Concomitant]
     Indication: THYROID DISORDER
     Dosage: UNK
     Dates: start: 2000
  8. CENTRUM [Concomitant]
     Indication: VITAMIN SUPPLEMENTATION
     Dosage: UNK
     Dates: start: 2000
  9. METFORMIN [Concomitant]
  10. L-THYROXINE [Concomitant]
     Dosage: 125MCG
     Route: 048
     Dates: start: 20090706
  11. TRIAMTERENE AND HYDROCHLOROTHIAZIDE [Concomitant]
     Dosage: 37.5/25
     Route: 048
     Dates: start: 20090618
  12. LEXAPRO [Concomitant]
     Dosage: 10 MG, UNK
     Route: 048
     Dates: start: 20090706
  13. LISINOPRIL [Concomitant]
  14. SULINDAC [Concomitant]
     Dosage: 150 MG,  Q 12 HRS,
     Route: 048
  15. TRIAMTEREN HCT [Concomitant]
     Dosage: 37.5-25 MG TABLET DAILY
  16. NITRO PASTE [Concomitant]
  17. MORPHINE [Concomitant]
     Indication: MYOCARDIAL INFARCTION
  18. SIMVASTATIN [Concomitant]

REACTIONS (11)
  - Myocardial infarction [None]
  - Depression [None]
  - Heart injury [None]
  - Pain [None]
  - Anxiety [None]
  - Asthenia [None]
  - General physical health deterioration [None]
  - Mental disorder [None]
  - Mental disorder [None]
  - Stress [None]
  - Activities of daily living impaired [None]
